FAERS Safety Report 24892686 (Version 4)
Quarter: 2025Q1

REPORT INFORMATION
  Report Type: Spontaneous
  Country: EG (occurrence: EG)
  Receive Date: 20250128
  Receipt Date: 20250221
  Transmission Date: 20250409
  Serious: Yes (Hospitalization, Other)
  Sender: NOVO NORDISK
  Company Number: EG-NOVOPROD-1353931

PATIENT
  Age: 234 Month
  Sex: Female
  Weight: 65 kg

DRUGS (8)
  1. TRESIBA [Suspect]
     Active Substance: INSULIN DEGLUDEC
     Dosage: 60 IU, QD(30 IU AM AND 30 IU PM )
     Route: 058
  2. TRESIBA [Suspect]
     Active Substance: INSULIN DEGLUDEC
     Dosage: 66 IU, QD(33 IU AM + 33 IU PM)
     Route: 058
  3. TRESIBA [Suspect]
     Active Substance: INSULIN DEGLUDEC
     Indication: Type 1 diabetes mellitus
     Dosage: 50 IU, QD(25IU AM -25 IU PM)
     Route: 058
     Dates: start: 20210720
  4. METHYLCOBALAMIN [Concomitant]
     Active Substance: METHYLCOBALAMIN
     Indication: Type 1 diabetes mellitus
     Route: 048
  5. NOVORAPID [Suspect]
     Active Substance: INSULIN ASPART
     Dosage: 70 IU, QD (20IU+30IU+20 IU PER EACH MEAL)
     Route: 058
  6. NOVORAPID [Suspect]
     Active Substance: INSULIN ASPART
     Indication: Type 1 diabetes mellitus
     Route: 058
     Dates: start: 20210720
  7. NOVORAPID [Suspect]
     Active Substance: INSULIN ASPART
     Dosage: 75 IU, QD(25 IU BREAKFAST-30 IU LUNCH -20 IU DINNER)
     Route: 058
  8. NOVORAPID [Suspect]
     Active Substance: INSULIN ASPART
     Dosage: 75 IU, QD(25 IU BREAKFAST-25 IU LUNCH -25 IU DINNER .)
     Route: 058

REACTIONS (6)
  - Hypoglycaemic coma [Recovered/Resolved]
  - Acidosis [Recovered/Resolved]
  - Menstruation irregular [Unknown]
  - Ovarian cyst [Unknown]
  - Glycosylated haemoglobin increased [Unknown]
  - Wrong technique in product usage process [Unknown]
